FAERS Safety Report 25268518 (Version 7)
Quarter: 2025Q4

REPORT INFORMATION
  Report Type: Spontaneous
  Country: GB (occurrence: GB)
  Receive Date: 20250505
  Receipt Date: 20251112
  Transmission Date: 20260118
  Serious: Yes (Death, Life-Threatening, Other)
  Sender: ACCORD
  Company Number: None

PATIENT
  Age: 59 Year
  Sex: Female

DRUGS (19)
  1. ARIPIPRAZOLE [Suspect]
     Active Substance: ARIPIPRAZOLE
     Indication: Product used for unknown indication
  2. FUROSEMIDE [Suspect]
     Active Substance: FUROSEMIDE
     Indication: Chronic obstructive pulmonary disease
     Dosage: 40 MG BD
     Dates: start: 20230525, end: 20230526
  3. MIRABEGRON [Concomitant]
     Active Substance: MIRABEGRON
  4. BECLOMETHASONE\FORMOTEROL [Concomitant]
     Active Substance: BECLOMETHASONE\FORMOTEROL
  5. ALBUTEROL [Concomitant]
     Active Substance: ALBUTEROL
  6. FLUOXETINE [Concomitant]
     Active Substance: FLUOXETINE HYDROCHLORIDE
  7. DAPAGLIFLOZIN [Concomitant]
     Active Substance: DAPAGLIFLOZIN
  8. ATORVASTATIN [Concomitant]
     Active Substance: ATORVASTATIN
  9. EDOXABAN [Concomitant]
     Active Substance: EDOXABAN
  10. EDOXABAN [Concomitant]
     Active Substance: EDOXABAN
  11. SPIRIVA [Concomitant]
     Active Substance: TIOTROPIUM BROMIDE MONOHYDRATE
  12. DULOXETINE [Concomitant]
     Active Substance: DULOXETINE
  13. PREGABALIN [Concomitant]
     Active Substance: PREGABALIN
  14. SITAGLIPTIN [Concomitant]
     Active Substance: SITAGLIPTIN
  15. BUTYLSCOPOLAMINE BROMIDE [Concomitant]
     Active Substance: BUTYLSCOPOLAMINE BROMIDE
  16. GLICLAZIDE [Concomitant]
     Active Substance: GLICLAZIDE
  17. FYBOGEL [Concomitant]
     Active Substance: HERBALS\PLANTAGO OVATA SEED
  18. ADCAL [Concomitant]
  19. CAPSAICIN [Concomitant]
     Active Substance: CAPSAICIN

REACTIONS (5)
  - Drug interaction [Not Recovered/Not Resolved]
  - Torsade de pointes [Fatal]
  - Acute respiratory distress syndrome [Fatal]
  - Pneumonia [Not Recovered/Not Resolved]
  - Spinal cord injury [Unknown]

NARRATIVE: CASE EVENT DATE: 20230525
